FAERS Safety Report 9191196 (Version 1)
Quarter: 2013Q1

REPORT INFORMATION
  Report Type: Spontaneous
  Country: US (occurrence: US)
  Receive Date: 20130326
  Receipt Date: 20130326
  Transmission Date: 20140127
  Serious: No
  Sender: FDA-Public Use
  Company Number: US-PFIZER INC-2013093498

PATIENT
  Sex: Male

DRUGS (2)
  1. GENOTROPIN [Suspect]
     Indication: GROWTH HORMONE DEFICIENCY
     Dosage: UNK, 1X/DAY
     Dates: start: 201303
  2. GUAIFENESIN [Concomitant]
     Dosage: UNK

REACTIONS (2)
  - Fatigue [Unknown]
  - Hypersomnia [Unknown]
